FAERS Safety Report 8379859-1 (Version None)
Quarter: 2012Q2

REPORT INFORMATION
  Report Type: 
  Country: None (occurrence: None)
  Receive Date: 20120523
  Receipt Date: 20120518
  Transmission Date: 20120825
  Serious: Yes (Other)
  Sender: FDA-Public Use
  Company Number: BR-PFIZER INC-2012122371

PATIENT
  Age: 53 Year
  Sex: Male
  Weight: 79 kg

DRUGS (4)
  1. VARENICLINE TARTRATE [Suspect]
     Dosage: UNK, TWICE DAILY
     Route: 048
  2. TIMOLOL MALEATE [Concomitant]
     Indication: GLAUCOMA
     Dosage: ONE DROP IN EACH EYE, 2X/DAY
     Dates: start: 20111101
  3. VARENICLINE TARTRATE [Suspect]
     Indication: TOBACCO USER
     Dosage: UNK
     Route: 048
     Dates: start: 20110303
  4. TIMOLOL MALEATE [Concomitant]
     Indication: OCULAR HYPERTENSION

REACTIONS (2)
  - WHITE BLOOD CELL COUNT INCREASED [None]
  - DENGUE FEVER [None]
